FAERS Safety Report 11084021 (Version 3)
Quarter: 2015Q2

REPORT INFORMATION
  Report Type: Report from Study
  Country: US (occurrence: US)
  Receive Date: 20150501
  Receipt Date: 20150522
  Transmission Date: 20150821
  Serious: Yes (Death, Hospitalization)
  Sender: FDA-Public Use
  Company Number: US-ACTELION-A-US2015-115122

PATIENT
  Age: 59 Year
  Sex: Female

DRUGS (4)
  1. MACITENTAN [Suspect]
     Active Substance: MACITENTAN
     Indication: PULMONARY ARTERIAL HYPERTENSION
     Dosage: 10 MG, DAILY
     Route: 048
     Dates: start: 20140930, end: 20150418
  2. REVATIO [Concomitant]
     Active Substance: SILDENAFIL CITRATE
     Dosage: UNK, TID
  3. ADCIRCA [Concomitant]
     Active Substance: TADALAFIL
     Dosage: UNK
     Dates: start: 201409
  4. LETAIRIS [Concomitant]
     Active Substance: AMBRISENTAN
     Dosage: UNK
     Dates: start: 201311

REACTIONS (7)
  - Uterine haemorrhage [Fatal]
  - Pulmonary oedema [Fatal]
  - Interstitial lung disease [Fatal]
  - Pulmonary arterial hypertension [Fatal]
  - Dyspnoea [Fatal]
  - Disease progression [Fatal]
  - Respiratory failure [Fatal]

NARRATIVE: CASE EVENT DATE: 201503
